FAERS Safety Report 11147597 (Version 1)
Quarter: 2015Q2

REPORT INFORMATION
  Report Type: Spontaneous
  Country: BR (occurrence: BR)
  Receive Date: 20150529
  Receipt Date: 20150529
  Transmission Date: 20150821
  Serious: Yes (Other)
  Sender: FDA-Public Use
  Company Number: BR-ROCHE-1583008

PATIENT
  Sex: Male
  Weight: 65 kg

DRUGS (2)
  1. TEGRETOL [Concomitant]
     Active Substance: CARBAMAZEPINE
     Indication: AFFECTIVE DISORDER
     Dosage: ONE TABLET IN THE MORNING AND ONE IN THE AFTERNOON
     Route: 065
     Dates: start: 1994
  2. RIVOTRIL [Suspect]
     Active Substance: CLONAZEPAM
     Indication: ANXIETY
     Route: 065
     Dates: start: 1990

REACTIONS (4)
  - Encephalopathy neonatal [Recovering/Resolving]
  - Schizophrenia [Recovering/Resolving]
  - Memory impairment [Not Recovered/Not Resolved]
  - Delusion [Unknown]
